FAERS Safety Report 9202384 (Version 1)
Quarter: 2013Q1

REPORT INFORMATION
  Report Type: Spontaneous
  Country: US (occurrence: None)
  Receive Date: 20130329
  Receipt Date: 20130329
  Transmission Date: 20140127
  Serious: Yes (Hospitalization)
  Sender: FDA-Public Use
  Company Number: None

PATIENT
  Age: 67 Year
  Sex: Female
  Weight: 72.58 kg

DRUGS (1)
  1. ONGLYZA 5 MG BRISTOL-MYERS SQUIBB [Suspect]
     Indication: TYPE 2 DIABETES MELLITUS
     Dates: start: 201204, end: 201205

REACTIONS (12)
  - Vomiting [None]
  - Dyspnoea [None]
  - Dysphonia [None]
  - Cough [None]
  - Back pain [None]
  - Chest discomfort [None]
  - Muscle tightness [None]
  - Oral disorder [None]
  - Chest pain [None]
  - Back pain [None]
  - Insomnia [None]
  - Weight decreased [None]
